FAERS Safety Report 5051387-0 (Version None)
Quarter: 2006Q3

REPORT INFORMATION
  Report Type: 
  Country: None (occurrence: None)
  Receive Date: 20060714
  Receipt Date: 20060705
  Transmission Date: 20061208
  Serious: Yes (Hospitalization)
  Sender: FDA-Public Use
  Company Number: FR-ABBOTT-06P-056-0337414-00

PATIENT
  Age: 74 Year
  Sex: Male

DRUGS (1)
  1. ZECLAR [Suspect]
     Indication: PNEUMOCOCCAL INFECTION
     Route: 048
     Dates: start: 20060610, end: 20060613

REACTIONS (3)
  - MALAISE [None]
  - RASH MACULO-PAPULAR [None]
  - SWELLING FACE [None]
